FAERS Safety Report 25701433 (Version 1)
Quarter: 2025Q3

REPORT INFORMATION
  Report Type: Spontaneous
  Country: KR (occurrence: KR)
  Receive Date: 20250819
  Receipt Date: 20250819
  Transmission Date: 20251021
  Serious: Yes (Death, Life-Threatening, Other)
  Sender: AMGEN
  Company Number: KR-AMGEN-KORSP2025162422

PATIENT

DRUGS (2)
  1. CARFILZOMIB [Suspect]
     Active Substance: CARFILZOMIB
     Indication: Plasma cell myeloma
     Route: 065
  2. TOLODODEKIN ALFA [Suspect]
     Active Substance: TOLODODEKIN ALFA
     Indication: Plasma cell myeloma
     Route: 065

REACTIONS (19)
  - General symptom [Fatal]
  - Administration site reaction [Fatal]
  - Infection [Fatal]
  - Infestation [Fatal]
  - Renal disorder [Fatal]
  - Anaemia [Unknown]
  - Neutropenia [Unknown]
  - Disease progression [Unknown]
  - Pneumonia [Unknown]
  - Adverse event [Unknown]
  - Pyrexia [Unknown]
  - Dyspnoea [Unknown]
  - Chills [Unknown]
  - Infusion related reaction [Unknown]
  - Cough [Unknown]
  - Nausea [Unknown]
  - Therapy partial responder [Unknown]
  - Drug ineffective [Unknown]
  - Asthenia [Unknown]
